FAERS Safety Report 19990441 (Version 1)
Quarter: 2021Q4

REPORT INFORMATION
  Report Type: Spontaneous
  Country: US (occurrence: US)
  Receive Date: 20211024
  Receipt Date: 20211024
  Transmission Date: 20220303
  Serious: Yes (Other)
  Sender: FDA-Public Use
  Company Number: None

PATIENT
  Age: 44 Year
  Sex: Female
  Weight: 56.25 kg

DRUGS (1)
  1. PREGABALIN [Suspect]
     Active Substance: PREGABALIN
     Indication: Neuralgia
     Route: 048

REACTIONS (5)
  - Drug dependence [None]
  - Withdrawal syndrome [None]
  - Pruritus [None]
  - Discomfort [None]
  - Formication [None]

NARRATIVE: CASE EVENT DATE: 20210601
